FAERS Safety Report 13081595 (Version 3)
Quarter: 2017Q1

REPORT INFORMATION
  Report Type: Spontaneous
  Country: US (occurrence: US)
  Receive Date: 20170103
  Receipt Date: 20170316
  Transmission Date: 20170428
  Serious: Yes (Other)
  Sender: FDA-Public Use
  Company Number: US-PFIZER INC-2016594872

PATIENT
  Sex: Male

DRUGS (3)
  1. XELJANZ XR [Suspect]
     Active Substance: TOFACITINIB CITRATE
     Indication: POLYARTHRITIS
     Dosage: 11 MG, DAILY
  2. XELJANZ XR [Suspect]
     Active Substance: TOFACITINIB CITRATE
     Indication: OSTEOARTHRITIS
  3. XELJANZ XR [Suspect]
     Active Substance: TOFACITINIB CITRATE
     Indication: MUSCULOSKELETAL PAIN

REACTIONS (9)
  - Arthralgia [Not Recovered/Not Resolved]
  - Fatigue [Not Recovered/Not Resolved]
  - Tenderness [Unknown]
  - Musculoskeletal stiffness [Not Recovered/Not Resolved]
  - Skin cancer [Unknown]
  - Arthropathy [Unknown]
  - Pain [Not Recovered/Not Resolved]
  - Drug ineffective for unapproved indication [Unknown]
  - Swelling [Unknown]
